FAERS Safety Report 6421585-X (Version None)
Quarter: 2009Q4

REPORT INFORMATION
  Report Type: 
  Country: None (occurrence: None)
  Receive Date: 20091030
  Receipt Date: 20091020
  Transmission Date: 20100525
  Serious: No
  Sender: FDA-Public Use
  Company Number: US-JNJFOC-20091007011

PATIENT
  Sex: Male
  Weight: 98.88 kg

DRUGS (3)
  1. DURAGESIC-100 [Suspect]
     Route: 062
  2. DURAGESIC-100 [Suspect]
     Indication: PAIN
     Route: 062
  3. UNKNOWN MEDICATION [Concomitant]
     Route: 065

REACTIONS (1)
  - WRONG TECHNIQUE IN DRUG USAGE PROCESS [None]
